FAERS Safety Report 23709267 (Version 1)
Quarter: 2024Q2

REPORT INFORMATION
  Report Type: Spontaneous
  Country: FR (occurrence: FR)
  Receive Date: 20240404
  Receipt Date: 20240404
  Transmission Date: 20240716
  Serious: Yes (Other)
  Sender: FDA-Public Use
  Company Number: FR-002147023-NVSC2024FR070664

PATIENT
  Age: 57 Year
  Sex: Female

DRUGS (4)
  1. EVEROLIMUS [Suspect]
     Active Substance: EVEROLIMUS
     Indication: Tuberous sclerosis complex
     Dosage: 10 MG, QD
     Route: 065
     Dates: start: 202212
  2. EVEROLIMUS [Suspect]
     Active Substance: EVEROLIMUS
     Dosage: 9 MG, QD
     Route: 065
     Dates: start: 202303
  3. EVEROLIMUS [Suspect]
     Active Substance: EVEROLIMUS
     Dosage: 6 MG, QD
     Route: 065
     Dates: start: 202312
  4. EVEROLIMUS [Suspect]
     Active Substance: EVEROLIMUS
     Dosage: 4 MG, QD
     Route: 065
     Dates: start: 202401

REACTIONS (6)
  - Cholestasis [Not Recovered/Not Resolved]
  - Anaemia [Recovering/Resolving]
  - Lymphopenia [Recovering/Resolving]
  - Drug level increased [Unknown]
  - Serum ferritin increased [Unknown]
  - Hypertension [Unknown]

NARRATIVE: CASE EVENT DATE: 20230301
